FAERS Safety Report 15396503 (Version 1)
Quarter: 2018Q4

REPORT INFORMATION
  Report Type: Spontaneous
  Country: GB (occurrence: GB)
  Receive Date: 20180918
  Receipt Date: 20180918
  Transmission Date: 20190204
  Serious: Yes (Death)
  Sender: FDA-Public Use
  Company Number: GB-PFIZER INC-2018374071

PATIENT
  Age: 23 Year
  Sex: Male

DRUGS (3)
  1. CEFTOLOZANE/TAZOBACTAM [Suspect]
     Active Substance: CEFTOLOZANE SULFATE\TAZOBACTAM SODIUM
     Indication: PSEUDOMONAS INFECTION
     Dosage: UNK
     Route: 042
  2. COLISTIN [Suspect]
     Active Substance: COLISTIN
     Indication: PSEUDOMONAS INFECTION
     Dosage: UNK
     Route: 055
  3. TIGECYCLINE. [Suspect]
     Active Substance: TIGECYCLINE
     Indication: PSEUDOMONAS INFECTION
     Dosage: UNK
     Route: 042

REACTIONS (1)
  - Drug ineffective [Fatal]
